FAERS Safety Report 10063428 (Version 1)
Quarter: 2014Q2

REPORT INFORMATION
  Report Type: Spontaneous
  Country: JP (occurrence: JP)
  Receive Date: 20140407
  Receipt Date: 20140407
  Transmission Date: 20141212
  Serious: Yes (Other)
  Sender: FDA-Public Use
  Company Number: JP-WATSON-2014-06377

PATIENT
  Age: 79 Year
  Sex: Male

DRUGS (1)
  1. PREDNISOLONE (UNKNOWN) [Suspect]
     Indication: PEMPHIGOID
     Dosage: 17.5 MG, DAILY
     Route: 048

REACTIONS (3)
  - Pneumonia cryptococcal [Recovering/Resolving]
  - Cryptococcal cutaneous infection [Recovering/Resolving]
  - Cellulitis [Recovering/Resolving]
